FAERS Safety Report 23251291 (Version 1)
Quarter: 2023Q4

REPORT INFORMATION
  Report Type: Spontaneous
  Country: US (occurrence: None)
  Receive Date: 20231130
  Receipt Date: 20231130
  Transmission Date: 20240109
  Serious: Yes (Other)
  Sender: FDA-Public Use
  Company Number: None

PATIENT
  Age: 70 Year
  Sex: Male

DRUGS (1)
  1. LENALIDOMIDE [Suspect]
     Active Substance: LENALIDOMIDE
     Indication: Plasma cell myeloma
     Dosage: 5MG QOD ORAL?
     Route: 048
     Dates: start: 20220428

REACTIONS (4)
  - Fatigue [None]
  - Asthenia [None]
  - Therapy interrupted [None]
  - Drug intolerance [None]

NARRATIVE: CASE EVENT DATE: 20231130
